FAERS Safety Report 21670225 (Version 1)
Quarter: 2022Q4

REPORT INFORMATION
  Report Type: Spontaneous
  Country: GB (occurrence: GB)
  Receive Date: 20221201
  Receipt Date: 20221201
  Transmission Date: 20230113
  Serious: Yes (Other)
  Sender: FDA-Public Use
  Company Number: None

PATIENT
  Age: 88 Year
  Sex: Female
  Weight: 60 kg

DRUGS (10)
  1. TRIMETHOPRIM [Suspect]
     Active Substance: TRIMETHOPRIM
     Indication: Ill-defined disorder
     Route: 065
     Dates: start: 20221117
  2. TRIMETHOPRIM [Concomitant]
     Active Substance: TRIMETHOPRIM
     Indication: Ill-defined disorder
     Dosage: 2 DOSAGE FORMS DAILY; TAKE ONE TABLET TWICE A DAY
     Dates: start: 20221114
  3. ADCAL [Concomitant]
     Indication: Ill-defined disorder
     Dosage: 2 DOSAGE FORMS DAILY; TAKE ONE TWICE DAILY
     Dates: start: 20201213
  4. AMLODIPINE [Concomitant]
     Active Substance: AMLODIPINE BESYLATE
     Indication: Ill-defined disorder
     Dosage: 1 DOSAGE FORMS DAILY; TAKE ONE DAILY
     Dates: start: 20211202
  5. BEZAFIBRATE [Concomitant]
     Active Substance: BEZAFIBRATE
     Indication: Ill-defined disorder
     Dosage: 1 DOSAGE FORMS DAILY; TAKE ONE ONCE DAILY
     Dates: start: 20211202
  6. CEPHALEXIN [Concomitant]
     Active Substance: CEPHALEXIN
     Indication: Ill-defined disorder
     Dosage: 2 DOSAGE FORMS DAILY; ONE TO BE TAKEN TWO TIMES DAILY FOR 7 DAYS, TO
     Dates: start: 20221117
  7. COCODAMOL [Concomitant]
     Active Substance: ACETAMINOPHEN\CODEINE PHOSPHATE
     Indication: Ill-defined disorder
     Dosage: TAKE 1 OR 2 4 TIMES/DAY
     Dates: start: 20221110
  8. DOCUSATE SODIUM [Concomitant]
     Active Substance: DOCUSATE SODIUM
     Indication: Ill-defined disorder
     Dosage: 4 DOSAGE FORMS DAILY; TAKE ONE 4 TIMES/DAY, DURATION: 7 DAYS
     Dates: start: 20221110, end: 20221117
  9. FEXOFENADINE [Concomitant]
     Active Substance: FEXOFENADINE HYDROCHLORIDE
     Indication: Ill-defined disorder
     Dosage: 1 OD - BD RPN
     Dates: start: 20201213
  10. LOSARTAN [Concomitant]
     Active Substance: LOSARTAN
     Indication: Ill-defined disorder
     Dosage: 1 DOSAGE FORMS DAILY; TAKE ONE DAILY
     Dates: start: 20220120

REACTIONS (1)
  - Dizziness [Recovering/Resolving]

NARRATIVE: CASE EVENT DATE: 20221118
